FAERS Safety Report 7011317-9 (Version None)
Quarter: 2010Q3

REPORT INFORMATION
  Report Type: 
  Country: None (occurrence: None)
  Receive Date: 20100922
  Receipt Date: 20100922
  Transmission Date: 20110219
  Serious: Yes (Hospitalization)
  Sender: FDA-Public Use
  Company Number: None

PATIENT
  Age: 60 Year
  Sex: Male
  Weight: 163.2949 kg

DRUGS (2)
  1. VICTOZA [Suspect]
     Indication: BLOOD GLUCOSE
     Dosage: 1.8 MG ONCE DAILY SQ
     Route: 058
     Dates: start: 20100705, end: 20100820
  2. VICTOZA [Suspect]
     Indication: HUNGER
     Dosage: 1.8 MG ONCE DAILY SQ
     Route: 058
     Dates: start: 20100705, end: 20100820

REACTIONS (1)
  - FOOD POISONING [None]
